FAERS Safety Report 16563036 (Version 4)
Quarter: 2019Q3

REPORT INFORMATION
  Report Type: Spontaneous
  Country: US (occurrence: US)
  Receive Date: 20190711
  Receipt Date: 20190731
  Transmission Date: 20191004
  Serious: Yes (Hospitalization)
  Sender: FDA-Public Use
  Company Number: US-TAKEDA-2019TUS042095

PATIENT
  Age: 66 Year
  Sex: Male
  Weight: 75 kg

DRUGS (10)
  1. DEXAMETHASONE. [Concomitant]
     Active Substance: DEXAMETHASONE
     Indication: AMYLOIDOSIS
     Dosage: 20 MILLIGRAM, UNK
     Route: 042
     Dates: start: 20190530
  2. MIDODRINE [Concomitant]
     Active Substance: MIDODRINE
     Indication: DIZZINESS
     Dosage: 5 MILLIGRAM, BID
     Route: 048
     Dates: start: 20190602
  3. ALEVE [Concomitant]
     Active Substance: NAPROXEN SODIUM
     Indication: MYALGIA
     Dosage: 220 MILLIGRAM
     Route: 048
     Dates: start: 1992
  4. TYLENOL [Concomitant]
     Active Substance: ACETAMINOPHEN
     Indication: HEADACHE
     Dosage: 325 MILLIGRAM
     Route: 048
     Dates: start: 1992
  5. DARATUMUMAB [Suspect]
     Active Substance: DARATUMUMAB
     Indication: AMYLOIDOSIS
     Dosage: 1800 MILLIGRAM, UNK
     Route: 058
     Dates: start: 20190530
  6. VELCADE [Suspect]
     Active Substance: BORTEZOMIB
     Indication: AMYLOIDOSIS
     Dosage: 2.3 MILLIGRAM, QD
     Route: 058
     Dates: start: 20190530
  7. CYCLOPHOSPHAMIDE. [Suspect]
     Active Substance: CYCLOPHOSPHAMIDE
     Indication: AMYLOIDOSIS
     Dosage: 500 MILLIGRAM, UNK
     Route: 048
     Dates: start: 20190530
  8. TORSEMIDE. [Concomitant]
     Active Substance: TORSEMIDE
     Indication: SWELLING
     Dosage: UNK, QD
     Route: 048
     Dates: start: 20190302
  9. POTASSIUM [Concomitant]
     Active Substance: POTASSIUM
     Indication: NUTRITIONAL SUPPLEMENTATION
     Dosage: 10 MILLIEQUIVALENT, QD
     Route: 048
     Dates: start: 20190302
  10. MIDODRINE [Concomitant]
     Active Substance: MIDODRINE
     Indication: HYPOTENSION
     Dosage: UNK

REACTIONS (3)
  - Pleural effusion [Not Recovered/Not Resolved]
  - Hepatomegaly [Not Recovered/Not Resolved]
  - Hyperbilirubinaemia [Not Recovered/Not Resolved]

NARRATIVE: CASE EVENT DATE: 20190620
